FAERS Safety Report 8270257-8 (Version None)
Quarter: 2012Q1

REPORT INFORMATION
  Report Type: 
  Country: None (occurrence: None)
  Receive Date: 20120327
  Receipt Date: 20100208
  Transmission Date: 20120608
  Serious: Yes (Other)
  Sender: FDA-Public Use
  Company Number: PHHY2010US07759

PATIENT
  Age: 54 Year
  Sex: Female

DRUGS (1)
  1. GLEEVEC [Suspect]
     Dosage: 400 MG/DAY, ORAL
     Route: 048
     Dates: start: 20090201, end: 20100128

REACTIONS (1)
  - WHITE BLOOD CELL COUNT DECREASED [None]
